FAERS Safety Report 25962001 (Version 1)
Quarter: 2025Q4

REPORT INFORMATION
  Report Type: Spontaneous
  Country: US (occurrence: US)
  Receive Date: 20251027
  Receipt Date: 20251027
  Transmission Date: 20260117
  Serious: No
  Sender: WAYLIS THERAPEUTICS
  Company Number: US-WAYLIS-2025-US-021407

PATIENT
  Sex: Female

DRUGS (1)
  1. ACIPHEX [Suspect]
     Active Substance: RABEPRAZOLE SODIUM
     Indication: Product used for unknown indication

REACTIONS (3)
  - Headache [Unknown]
  - Food poisoning [Unknown]
  - Product availability issue [Unknown]
